FAERS Safety Report 9619565 (Version 1)
Quarter: 2013Q4

REPORT INFORMATION
  Report Type: Spontaneous
  Country: US (occurrence: US)
  Receive Date: 20131014
  Receipt Date: 20131014
  Transmission Date: 20140711
  Serious: Yes (Other)
  Sender: FDA-Public Use
  Company Number: US-PFIZER INC-2013291348

PATIENT
  Age: 48 Year
  Sex: Female

DRUGS (1)
  1. CHAPSTICK CLASSIC ORIGINAL [Suspect]
     Dosage: UNK
     Dates: start: 20131008, end: 20131008

REACTIONS (3)
  - Eye burns [Unknown]
  - Product quality issue [Unknown]
  - Nausea [Unknown]
